FAERS Safety Report 9279043 (Version 2)
Quarter: 2013Q2

REPORT INFORMATION
  Report Type: Spontaneous
  Country: DE (occurrence: DE)
  Receive Date: 20130508
  Receipt Date: 20130514
  Transmission Date: 20140414
  Serious: Yes (Life-Threatening, Hospitalization)
  Sender: FDA-Public Use
  Company Number: DE-JNJFOC-20130418007

PATIENT
  Age: 61 Year
  Sex: Female
  Weight: 82 kg

DRUGS (7)
  1. XARELTO [Suspect]
     Indication: VENOUS THROMBOSIS LIMB
     Route: 048
     Dates: start: 20130325
  2. XARELTO [Suspect]
     Indication: PULMONARY EMBOLISM
     Route: 048
     Dates: start: 20130325
  3. PANTAZOL [Concomitant]
     Route: 065
  4. SORTIS (ATORVASTATIN) [Concomitant]
     Route: 065
  5. DECORTIN [Concomitant]
     Route: 065
  6. TREVILOR [Concomitant]
     Route: 065
  7. BIKALM [Concomitant]
     Dosage: 1 PER DAY
     Route: 065

REACTIONS (1)
  - Cerebral ischaemia [Recovering/Resolving]
